FAERS Safety Report 18392606 (Version 15)
Quarter: 2021Q2

REPORT INFORMATION
  Report Type: Spontaneous
  Country: GB (occurrence: GB)
  Receive Date: 20201016
  Receipt Date: 20210617
  Transmission Date: 20210717
  Serious: Yes (Other)
  Sender: FDA-Public Use
  Company Number: GB-GLAXOSMITHKLINE-GB2020201947

PATIENT
  Age: 51 Year
  Sex: Male
  Weight: 53 kg

DRUGS (52)
  1. SODIUM CHLORIDE. [Suspect]
     Active Substance: SODIUM CHLORIDE
     Dosage: UNK
     Route: 065
     Dates: start: 20200825, end: 20200825
  2. ADCAL D3 [Suspect]
     Active Substance: CALCIUM CARBONATE\CHOLECALCIFEROL
     Dosage: UNK
     Route: 065
  3. DEXAMETHASONE. [Suspect]
     Active Substance: DEXAMETHASONE
     Dosage: 8 MG, QD(8 MG, 1X/DAY )
     Route: 048
     Dates: start: 20200825
  4. CISPLATIN. [Suspect]
     Active Substance: CISPLATIN
     Indication: GERM CELL NEOPLASM
     Dosage: 79 MG (IN 1 LITER (NOT SPECIFIED)) (79 MG)
     Route: 065
     Dates: start: 20200825
  5. DOMPERIDONE [Suspect]
     Active Substance: DOMPERIDONE
     Indication: SUPPORTIVE CARE
     Dosage: 30 MG, QD, 30 MG, QD (PRN (30 MG,1 D))
     Route: 048
     Dates: start: 20200825
  6. COLECALCIFEROL [Suspect]
     Active Substance: CHOLECALCIFEROL
     Dosage: 1 DF, QD(UNK, QD, (UNK UNK, QD) )
     Route: 065
  7. COLECALCIFEROL [Suspect]
     Active Substance: CHOLECALCIFEROL
     Dosage: 8 DF, QD
     Route: 065
  8. CALCIUM [Suspect]
     Active Substance: CALCIUM
     Dosage: 1 DF, QD(UNK, QD, (UNK UNK, QD))
     Route: 065
  9. CALCIUM [Suspect]
     Active Substance: CALCIUM
     Dosage: UNK, QD (1 UNK, QD )
     Route: 065
  10. SODIUM CHLORIDE. [Suspect]
     Active Substance: SODIUM CHLORIDE
     Indication: MEDICATION DILUTION
     Dosage: 0.9 %, (UNKNOWN)
     Route: 065
     Dates: start: 20200825, end: 20200825
  11. THIAMINE MONONITRATE [Suspect]
     Active Substance: THIAMINE MONONITRATE
     Indication: HYPOVITAMINOSIS
  12. NAUZELIN [Suspect]
     Active Substance: DOMPERIDONE
     Dosage: 30 MG, QD(30 MG, 1 D (QD), AS NECESSARY )
     Route: 048
     Dates: start: 20200825
  13. ETOPOSIDE. [Suspect]
     Active Substance: ETOPOSIDE
     Dosage: 360 MG (IN 1 LITER 2 BAGS (360 MG))
     Route: 065
     Dates: start: 20200825, end: 20200825
  14. ETOPOSIDE. [Suspect]
     Active Substance: ETOPOSIDE
     Dosage: UNK
     Route: 065
     Dates: start: 202007
  15. DEXAMETHASONE. [Suspect]
     Active Substance: DEXAMETHASONE
     Indication: SUPPORTIVE CARE
     Dosage: 8 MG, QD(8MILLIGRAM, QD)
     Route: 048
     Dates: start: 20200825
  16. APREPITANT. [Suspect]
     Active Substance: APREPITANT
     Indication: SUPPORTIVE CARE
     Dosage: 125 MG (D1) SINGLE (D1 (125 MG)/125 MG, 1X; IN TOTAL)
     Route: 065
     Dates: start: 20200826
  17. CALCIUM AND COLECALCIFEROL [Suspect]
     Active Substance: CALCIUM\CHOLECALCIFEROL
     Dosage: 8 DF, QD
     Route: 065
  18. COLECALCIFEROL [Suspect]
     Active Substance: CHOLECALCIFEROL
     Indication: MINERAL SUPPLEMENTATION
     Dosage: 8 DF, QD
     Route: 065
  19. CALCIUM [Suspect]
     Active Substance: CALCIUM
     Indication: MINERAL SUPPLEMENTATION
     Dosage: 8 DF, QD
     Route: 065
  20. ETOPOSIDE. [Suspect]
     Active Substance: ETOPOSIDE
     Indication: GERM CELL NEOPLASM
     Dosage: UNK
     Route: 065
     Dates: start: 202007
  21. ADCAL D3 [Suspect]
     Active Substance: CALCIUM CARBONATE\CHOLECALCIFEROL
     Dosage: 1 DF (TABLET(1D); 1DF)
     Route: 065
  22. ADCAL D3 [Suspect]
     Active Substance: CALCIUM CARBONATE\CHOLECALCIFEROL
     Dosage: UNK UNK, QD(TABLET 2UNK )
     Route: 065
  23. ONDANSETRON [Suspect]
     Active Substance: ONDANSETRON
     Indication: SUPPORTIVE CARE
     Dosage: 16 MG, QD (FOR 3 DAYS (16 MG,1 D/ORODISPERSIBLE FILM))
     Route: 048
     Dates: start: 20200825
  24. PROPYPHENAZONE [Suspect]
     Active Substance: PROPYPHENAZONE
     Dosage: 300 MG, QD
     Route: 065
  25. CALCIUM [Suspect]
     Active Substance: CALCIUM
     Dosage: 1 DF, QD(UNK, QD, (UNK UNK, QD)  )
     Route: 065
  26. APREPITANT. [Suspect]
     Active Substance: APREPITANT
     Dosage: UNK UNK, QD
     Route: 065
  27. CALCIUM AND COLECALCIFEROL [Suspect]
     Active Substance: CALCIUM\CHOLECALCIFEROL
     Indication: MINERAL SUPPLEMENTATION
     Dosage: UNK, QD, (UNK UNK, QD)
     Route: 065
  28. COLECALCIFEROL [Suspect]
     Active Substance: CHOLECALCIFEROL
     Dosage: 1 DF, QD
     Route: 065
  29. CALCIUM + VITAMIN D3 [Suspect]
     Active Substance: CALCIUM\CHOLECALCIFEROL
     Indication: MINERAL SUPPLEMENTATION
     Dosage: UNK, QD (UNK UNK, QD)
     Route: 065
  30. THIAMINE MONONITRATE [Suspect]
     Active Substance: THIAMINE MONONITRATE
     Indication: HYPOVITAMINOSIS
     Dosage: 300 MG, QD
     Route: 065
  31. NAUZELIN [Suspect]
     Active Substance: DOMPERIDONE
     Dosage: 8 MG, QD(8 MILLIGRAM, QD )
     Route: 048
     Dates: start: 20200825
  32. ADCAL D3 [Suspect]
     Active Substance: CALCIUM CARBONATE\CHOLECALCIFEROL
     Indication: MINERAL SUPPLEMENTATION
     Dosage: 1 DF, QD
     Route: 065
  33. PROPYPHENAZONE [Suspect]
     Active Substance: PROPYPHENAZONE
     Indication: HYPOVITAMINOSIS
     Dosage: 300 MG, QD
     Route: 065
  34. THIAMINE. [Suspect]
     Active Substance: THIAMINE
     Dosage: 300 MG, QD
     Route: 065
  35. CALCIUM [Suspect]
     Active Substance: CALCIUM
     Indication: MINERAL SUPPLEMENTATION
     Dosage: UNK, QD (1 UNK, QD )
     Route: 065
  36. NAUZELIN [Suspect]
     Active Substance: DOMPERIDONE
     Indication: SUPPORTIVE CARE
     Dosage: 30 MG, QD (PRN (30 MG,1 D))
     Route: 048
     Dates: start: 20200825
  37. APREPITANT. [Suspect]
     Active Substance: APREPITANT
     Dosage: 125 MG D1 (125 MG)
     Route: 065
     Dates: start: 20200825
  38. APREPITANT. [Suspect]
     Active Substance: APREPITANT
     Dosage: 80 MG
     Route: 065
     Dates: start: 20200826
  39. DOMPERIDONE [Suspect]
     Active Substance: DOMPERIDONE
     Dosage: 8 MG, QD(8 MILLIGRAM, QD )
     Route: 048
     Dates: start: 20200825
  40. PHENYLBUTAZONE [Suspect]
     Active Substance: PHENYLBUTAZONE
     Indication: HYPOVITAMINOSIS
     Dosage: 300 MG, QD
     Route: 065
  41. THIAMINE HYDROCHLORIDE. [Suspect]
     Active Substance: THIAMINE HYDROCHLORIDE
     Indication: NUTRITIONAL SUPPLEMENTATION
     Dosage: 1 DF
     Route: 065
  42. ADCAL D3 [Suspect]
     Active Substance: CALCIUM CARBONATE\CHOLECALCIFEROL
     Dosage: 2 DF (TABLET 2 (2 DOSAGE FORMS))
     Route: 065
  43. COLECALCIFEROL [Suspect]
     Active Substance: CHOLECALCIFEROL
     Indication: MINERAL SUPPLEMENTATION
     Dosage: UNK, QD(TABLET(1D) / UNK, QD (TABLET(1D))   )
     Route: 065
  44. COLECALCIFEROL [Suspect]
     Active Substance: CHOLECALCIFEROL
     Dosage: UNK UNK, QD(TABLET(1D) / UNK, QD (TABLET(1D)) )
     Route: 065
  45. THIAMINE. [Suspect]
     Active Substance: THIAMINE
     Indication: HYPOVITAMINOSIS
     Dosage: UNK
     Route: 065
  46. NICOTINE. [Suspect]
     Active Substance: NICOTINE
     Indication: DRUG THERAPY
     Dosage: 21 MG, QD (PATCH, EVERY 24 HOURS)
     Route: 065
  47. CALCIUM + VITAMIN D3 [Suspect]
     Active Substance: CALCIUM\CHOLECALCIFEROL
     Dosage: 8 DF, QD
     Route: 065
  48. CALCIUM [Suspect]
     Active Substance: CALCIUM
     Dosage: 1 DF, QD(UNK, QD, (UNK UNK, QD )
     Route: 065
  49. SODIUM CHLORIDE. [Suspect]
     Active Substance: SODIUM CHLORIDE
     Indication: MEDICATION DILUTION
     Dosage: UNK
     Route: 065
     Dates: start: 20200825, end: 20200825
  50. ADCAL D3 [Suspect]
     Active Substance: CALCIUM CARBONATE\CHOLECALCIFEROL
     Dosage: 2 DF, QD (2 DF, QD (TABLET), TABLET 2UNK)
     Route: 065
  51. APREPITANT. [Suspect]
     Active Substance: APREPITANT
     Indication: MINERAL SUPPLEMENTATION
     Dosage: 80 MG,  (D2) SINGLE (IN TOTAL)
     Route: 065
     Dates: start: 20200825
  52. COLECALCIFEROL [Suspect]
     Active Substance: CHOLECALCIFEROL
     Indication: MINERAL SUPPLEMENTATION
     Dosage: UNK, QD
     Route: 065

REACTIONS (1)
  - Hypersensitivity [Recovered/Resolved]

NARRATIVE: CASE EVENT DATE: 20200825
